FAERS Safety Report 5961687-5 (Version None)
Quarter: 2008Q4

REPORT INFORMATION
  Report Type: 
  Country: None (occurrence: None)
  Receive Date: 20081121
  Receipt Date: 20081118
  Transmission Date: 20090506
  Serious: Yes (Death)
  Sender: FDA-Public Use
  Company Number: US-GILEAD-2008-0019078

PATIENT
  Sex: Female
  Weight: 99.88 kg

DRUGS (13)
  1. LETAIRIS [Suspect]
     Indication: PULMONARY FIBROSIS
     Route: 048
     Dates: start: 20080804
  2. BACTRIM [Concomitant]
     Route: 048
     Dates: start: 20080804
  3. PRILOSEC [Concomitant]
  4. XANAX [Concomitant]
  5. PREDNISONE TAB [Concomitant]
  6. AZATHIOPRINE [Concomitant]
  7. GLUCOPHAGE [Concomitant]
  8. ASPIRIN [Concomitant]
  9. LEXAPRO [Concomitant]
  10. FISH OIL [Concomitant]
  11. VYTORIN [Concomitant]
  12. ACETYLCYSTEINE [Concomitant]
  13. DARVOCET-N 100 [Concomitant]

REACTIONS (1)
  - DEATH [None]
